FAERS Safety Report 7231829-2 (Version None)
Quarter: 2011Q1

REPORT INFORMATION
  Report Type: 
  Country: None (occurrence: None)
  Receive Date: 20110118
  Receipt Date: 20110111
  Transmission Date: 20110831
  Serious: Yes (Life-Threatening, Hospitalization)
  Sender: FDA-Public Use
  Company Number: US-TEVA-263010USA

PATIENT
  Sex: Female

DRUGS (3)
  1. METHOTREXATE SOLUTION FOR INJECTION, 25 MG/ML [Suspect]
  2. ADALIMUMAB [Suspect]
     Dates: start: 20030901, end: 20040101
  3. ETANERCEPT [Suspect]
     Indication: RHEUMATOID ARTHRITIS
     Dosage: 2 TIMES/WK
     Dates: start: 20010701

REACTIONS (1)
  - PERITONEAL TUBERCULOSIS [None]
